FAERS Safety Report 5957801-8 (Version None)
Quarter: 2008Q4

REPORT INFORMATION
  Report Type: 
  Country: None (occurrence: None)
  Receive Date: 20081117
  Receipt Date: 20081003
  Transmission Date: 20090506
  Serious: Yes (Hospitalization)
  Sender: FDA-Public Use
  Company Number: A-NJ2008-21530

PATIENT
  Age: 70 Year
  Sex: Female
  Weight: 152.8 kg

DRUGS (3)
  1. TRACLEER [Suspect]
     Indication: PULMONARY ARTERIAL HYPERTENSION
     Dosage: 125 MG, BID, ORAL; 62.5 MG, BID,ORAL; 62.5 MG, BID, ORAL
     Route: 048
     Dates: start: 20080707, end: 20080910
  2. TRACLEER [Suspect]
     Indication: PULMONARY ARTERIAL HYPERTENSION
     Dosage: 125 MG, BID, ORAL; 62.5 MG, BID,ORAL; 62.5 MG, BID, ORAL
     Route: 048
     Dates: start: 20081008, end: 20081001
  3. TRACLEER [Suspect]
     Indication: PULMONARY ARTERIAL HYPERTENSION
     Dosage: 125 MG, BID, ORAL; 62.5 MG, BID,ORAL; 62.5 MG, BID, ORAL
     Route: 048
     Dates: start: 20080911, end: 20081007

REACTIONS (6)
  - ABDOMINAL WALL DISORDER [None]
  - CONDITION AGGRAVATED [None]
  - DYSPNOEA [None]
  - GENERALISED OEDEMA [None]
  - HYPERKALAEMIA [None]
  - LOCALISED OEDEMA [None]
